FAERS Safety Report 7989005-1 (Version None)
Quarter: 2011Q4

REPORT INFORMATION
  Report Type: 
  Country: None (occurrence: None)
  Receive Date: 20111219
  Receipt Date: 20111215
  Transmission Date: 20120403
  Serious: Yes (Death)
  Sender: FDA-Public Use
  Company Number: PHEH2011US009950

PATIENT
  Sex: Male
  Weight: 57 kg

DRUGS (7)
  1. HYDREA [Concomitant]
     Indication: PROPHYLAXIS
     Dosage: 2000 MG, UNK
     Route: 048
  2. EXJADE [Suspect]
     Indication: SICKLE CELL ANAEMIA
  3. EXJADE [Suspect]
     Indication: IRON OVERLOAD
     Dosage: 1000 MG, QD
     Route: 048
     Dates: start: 20001212
  4. COUMADIN [Concomitant]
     Dosage: 6 MG, UNK
     Route: 048
  5. ZYRTEC [Concomitant]
     Indication: HYPERSENSITIVITY
     Dosage: 10 MG, UNK
     Route: 048
  6. MARIPEN ER [Concomitant]
     Dosage: 60 MG, UNK
  7. MORPHINE [Concomitant]
     Dosage: 1.2 MG, UNK

REACTIONS (2)
  - SERUM FERRITIN INCREASED [None]
  - DEATH [None]
